FAERS Safety Report 21714480 (Version 1)
Quarter: 2022Q4

REPORT INFORMATION
  Report Type: Spontaneous
  Country: HR (occurrence: HR)
  Receive Date: 20221212
  Receipt Date: 20221212
  Transmission Date: 20230113
  Serious: Yes (Other)
  Sender: FDA-Public Use
  Company Number: HR-009507513-2212HRV003479

PATIENT
  Age: 72 Year
  Sex: Female

DRUGS (1)
  1. KEYTRUDA [Suspect]
     Active Substance: PEMBROLIZUMAB
     Indication: Lung adenocarcinoma
     Dosage: UNK
     Dates: start: 20200302

REACTIONS (12)
  - Hyperthyroidism [Unknown]
  - Malignant neoplasm progression [Unknown]
  - Hypothyroidism [Unknown]
  - Myocarditis [Unknown]
  - Pericardial effusion [Unknown]
  - Pleural effusion [Unknown]
  - Lymphadenopathy [Unknown]
  - Lung opacity [Unknown]
  - Thyroiditis [Unknown]
  - Oedema peripheral [Unknown]
  - Periorbital oedema [Unknown]
  - Dyspnoea [Unknown]

NARRATIVE: CASE EVENT DATE: 20210312
